FAERS Safety Report 8605354-8 (Version None)
Quarter: 2012Q3

REPORT INFORMATION
  Report Type: 
  Country: None (occurrence: None)
  Receive Date: 20120820
  Receipt Date: 20120809
  Transmission Date: 20120928
  Serious: Yes (Hospitalization, Other)
  Sender: FDA-Public Use
  Company Number: US-ASTRAZENECA-2009SE33642

PATIENT
  Age: 54 Year
  Sex: Female
  Weight: 49.9 kg

DRUGS (6)
  1. SEROQUEL [Suspect]
     Route: 048
  2. SEROQUEL [Suspect]
     Indication: SLEEP DISORDER
     Dosage: DAILY
     Route: 048
     Dates: start: 20060101, end: 20080101
  3. SEROQUEL [Suspect]
     Route: 048
  4. SEROQUEL [Suspect]
     Indication: POST-TRAUMATIC STRESS DISORDER
     Dosage: DAILY
     Route: 048
     Dates: start: 20060101, end: 20080101
  5. SEROQUEL [Suspect]
     Route: 048
  6. SEROQUEL [Suspect]
     Indication: DEPRESSION
     Dosage: DAILY
     Route: 048
     Dates: start: 20060101, end: 20080101

REACTIONS (3)
  - SOMNAMBULISM [None]
  - AMNESIA [None]
  - LOSS OF CONSCIOUSNESS [None]
